FAERS Safety Report 20712439 (Version 1)
Quarter: 2022Q2

REPORT INFORMATION
  Report Type: Spontaneous
  Country: TR (occurrence: TR)
  Receive Date: 20220415
  Receipt Date: 20220415
  Transmission Date: 20220721
  Serious: Yes (Other)
  Sender: FDA-Public Use
  Company Number: TR-SUN PHARMACEUTICAL INDUSTRIES LTD-2022RR-333001

PATIENT
  Age: 16 Year
  Sex: Female
  Weight: 33.1 kg

DRUGS (2)
  1. AMLODIPINE [Suspect]
     Active Substance: AMLODIPINE BESYLATE
     Indication: Hypertension
     Dosage: 0.3 MILLIGRAM/KILOGRAM, DAILY
     Route: 065
  2. ENALAPRIL [Suspect]
     Active Substance: ENALAPRIL
     Indication: Hypertension
     Dosage: 0.6 MILLIGRAM/KILOGRAM, DAILY
     Route: 065

REACTIONS (4)
  - Angioedema [Unknown]
  - Headache [Unknown]
  - Vomiting [Unknown]
  - Hypoaesthesia oral [Unknown]
